FAERS Safety Report 13694403 (Version 1)
Quarter: 2017Q2

REPORT INFORMATION
  Report Type: Spontaneous
  Country: FR (occurrence: FR)
  Receive Date: 20170627
  Receipt Date: 20170627
  Transmission Date: 20170830
  Serious: Yes (Hospitalization)
  Sender: FDA-Public Use
  Company Number: FR-PFIZER INC-2017274541

PATIENT
  Age: 66 Year
  Sex: Female

DRUGS (27)
  1. JANUVIA [Concomitant]
     Active Substance: SITAGLIPTIN PHOSPHATE
     Dosage: 100 MG, 1X/DAY(IN THE MORNING)
  2. TRAMADOL. [Concomitant]
     Active Substance: TRAMADOL
     Dosage: 100 MG, 2X/DAY(IN THE MORNING, IN THE EVENING)
  3. CARBOPLATINE HOSPIRA [Suspect]
     Active Substance: CARBOPLATIN
     Dosage: 790 MG, (2ND COURSE)
     Route: 042
     Dates: start: 20160617
  4. KARDEGIC [Concomitant]
     Active Substance: ASPIRIN LYSINE
     Dosage: 75 MG, 1X/DAY (IN THE MORNING)
  5. MEDROL [Concomitant]
     Active Substance: METHYLPREDNISOLONE
     Dosage: 100 MG, 2X/DAY(TWICE IN THE MORNING)
  6. LEVETIRACETAM. [Concomitant]
     Active Substance: LEVETIRACETAM
     Dosage: 1.5 DF, 2X/DAY(IN THE MORNING, IN THE EVENING)
  7. ESIDREX [Concomitant]
     Active Substance: HYDROCHLOROTHIAZIDE
     Dosage: 0.5 DF, 1X/DAY(IN THE MORNING)
  8. SMECTA [Concomitant]
     Active Substance: MONTMORILLONITE
     Dosage: 1 DF, 3X/DAY (IN THE MORNING, AT MIDDAY AND IN THE EVENING)
  9. VALSARTAN. [Concomitant]
     Active Substance: VALSARTAN
     Dosage: 80 MG, 2X/DAY (TWICE IN THE MORNING)
  10. FUROSEMIDE. [Concomitant]
     Active Substance: FUROSEMIDE
     Dosage: 1.5 DF, 2X/DAY(IN THE MORNING, AT MIDDAY)
  11. LANTUS [Concomitant]
     Active Substance: INSULIN GLARGINE
     Dosage: 10 IU, 1X/DAY(IN THE MORNING)
  12. EMEND [Concomitant]
     Active Substance: APREPITANT
     Indication: PROPHYLAXIS OF NAUSEA AND VOMITING
  13. URBANYL [Concomitant]
     Active Substance: CLOBAZAM
     Dosage: 5 MG, 1X/DAY(IN THE MORNING)
  14. ETOPOSIDE TEVA [Suspect]
     Active Substance: ETOPOSIDE
     Indication: BRONCHIAL CARCINOMA
     Dosage: 210 MG, (1ST COURSE)
     Route: 042
     Dates: start: 20160526, end: 20160528
  15. ETOPOSIDE TEVA [Suspect]
     Active Substance: ETOPOSIDE
     Dosage: 200 MG, (3RD COURSE)
     Route: 042
     Dates: start: 20160725, end: 20160727
  16. ALPRAZOLAM. [Concomitant]
     Active Substance: ALPRAZOLAM
     Dosage: 0.5 MG, 2X/DAY(IN THE MORNING, IN THE EVENING)
  17. PARACETAMOL [Concomitant]
     Active Substance: ACETAMINOPHEN
     Dosage: 500 MG, 3X/DAY
  18. NICOTINELL [Concomitant]
     Active Substance: NICOTINE
     Dosage: 14 MG, 1X/DAY
  19. NEULASTA [Concomitant]
     Active Substance: PEGFILGRASTIM
  20. ATORVASTATIN [Concomitant]
     Active Substance: ATORVASTATIN
     Dosage: 10 MG, 2X/DAY (TWICE IN THE EVENING)
  21. INEXIUM /01479302/ [Concomitant]
     Active Substance: ESOMEPRAZOLE MAGNESIUM
     Dosage: 40 MG, 1X/DAY (IN THE EVENING)
  22. METFORMIN [Concomitant]
     Active Substance: METFORMIN HYDROCHLORIDE
     Dosage: 1000 MG, 3X/DAY(IN THE MORNING,AT MIDDAY,IN THE EVENING)
  23. CARBOPLATINE HOSPIRA [Suspect]
     Active Substance: CARBOPLATIN
     Indication: BRONCHIAL CARCINOMA
     Dosage: 840 MG, (1ST COURSE)
     Route: 042
     Dates: start: 20160526
  24. CARBOPLATINE HOSPIRA [Suspect]
     Active Substance: CARBOPLATIN
     Dosage: 680 MG, (3RD COURSE)
     Route: 042
     Dates: start: 20160725, end: 20160725
  25. ETOPOSIDE TEVA [Suspect]
     Active Substance: ETOPOSIDE
     Dosage: 210 MG, (2ND COURSE)
     Route: 042
     Dates: start: 20160617, end: 20160619
  26. ZOLOFT [Concomitant]
     Active Substance: SERTRALINE HYDROCHLORIDE
     Dosage: 50 MG, 1X/DAY (IN THE MORNING)
  27. DIFFU K [Concomitant]
     Active Substance: POTASSIUM CHLORIDE
     Dosage: 4 DF, (2 IN THE MORNING, 2 AT MIDDAY

REACTIONS (2)
  - Sideroblastic anaemia [Recovered/Resolved]
  - Thrombocytopenia [Recovered/Resolved]

NARRATIVE: CASE EVENT DATE: 20160809
